FAERS Safety Report 17353422 (Version 1)
Quarter: 2020Q1

REPORT INFORMATION
  Report Type: Spontaneous
  Country: CA (occurrence: CA)
  Receive Date: 20200131
  Receipt Date: 20200131
  Transmission Date: 20200409
  Serious: Yes (Other)
  Sender: FDA-Public Use
  Company Number: CA-TEVA-2020-CA-1176802

PATIENT
  Age: 93 Year
  Sex: Female

DRUGS (1)
  1. VENLAFAXINE HYDROCHLORIDE. [Suspect]
     Active Substance: VENLAFAXINE HYDROCHLORIDE
     Indication: DEPRESSION
     Dosage: 75 MILLIGRAM DAILY;
     Route: 065

REACTIONS (4)
  - Pulmonary fibrosis [Recovered/Resolved]
  - Cardiomegaly [Recovered/Resolved]
  - Bronchiectasis [Recovered/Resolved]
  - Interstitial lung disease [Recovered/Resolved]
